FAERS Safety Report 9393122 (Version 1)
Quarter: 2013Q3

REPORT INFORMATION
  Report Type: Spontaneous
  Country: DE (occurrence: DE)
  Receive Date: 20130710
  Receipt Date: 20130710
  Transmission Date: 20140515
  Serious: Yes (Hospitalization)
  Sender: FDA-Public Use
  Company Number: DE-JNJFOC-20130618363

PATIENT
  Age: 40 Year
  Sex: Female
  Weight: 63 kg

DRUGS (7)
  1. DUROGESIC SMAT [Suspect]
     Indication: INTERVERTEBRAL DISC PROTRUSION
     Route: 062
  2. DIPIDOLOR [Suspect]
     Indication: INTERVERTEBRAL DISC PROTRUSION
     Route: 040
  3. PETHIDINE [Suspect]
     Indication: INTERVERTEBRAL DISC PROTRUSION
     Route: 065
  4. LYRICA [Suspect]
     Indication: INTERVERTEBRAL DISC PROTRUSION
     Route: 048
  5. CYMBALTA [Suspect]
     Indication: INTERVERTEBRAL DISC PROTRUSION
     Route: 048
  6. GLUCOCORTICOID [Concomitant]
     Indication: MATERNAL THERAPY TO ENHANCE FOETAL LUNG MATURITY
     Route: 042
  7. FOLSAN [Concomitant]
     Indication: PROPHYLAXIS OF NEURAL TUBE DEFECT
     Route: 048

REACTIONS (2)
  - Premature labour [Recovered/Resolved]
  - Exposure during pregnancy [Recovered/Resolved]
